FAERS Safety Report 21086597 (Version 3)
Quarter: 2022Q3

REPORT INFORMATION
  Report Type: Spontaneous
  Country: US (occurrence: US)
  Receive Date: 20220715
  Receipt Date: 20220830
  Transmission Date: 20221026
  Serious: No
  Sender: FDA-Public Use
  Company Number: US-ALXN-A202208242

PATIENT
  Sex: Male
  Weight: 117.91 kg

DRUGS (4)
  1. SOLIRIS [Suspect]
     Active Substance: ECULIZUMAB
     Indication: Myasthenia gravis
     Dosage: 300 MG, Q2W
     Route: 042
     Dates: start: 20210222
  2. SOLIRIS [Suspect]
     Active Substance: ECULIZUMAB
     Dosage: 1200 MG, Q2W
     Route: 042
  3. SODIUM CHLORIDE [Concomitant]
     Active Substance: SODIUM CHLORIDE
     Indication: Product used for unknown indication
     Route: 065
  4. SODIUM CHLORIDE [Concomitant]
     Active Substance: SODIUM CHLORIDE
     Indication: Product used for unknown indication
     Dosage: UNK
     Route: 065

REACTIONS (8)
  - Swelling [Unknown]
  - Aphasia [Unknown]
  - Off label use [Unknown]
  - Dyspnoea [Unknown]
  - Diplopia [Unknown]
  - Posture abnormal [Unknown]
  - Gait disturbance [Unknown]
  - Speech disorder [Unknown]
